FAERS Safety Report 9912256 (Version 1)
Quarter: 2014Q1

REPORT INFORMATION
  Report Type: Spontaneous
  Country: US (occurrence: US)
  Receive Date: 20140220
  Receipt Date: 20140220
  Transmission Date: 20141002
  Serious: Yes (Other)
  Sender: FDA-Public Use
  Company Number: US-AMGEN-USASP2014011781

PATIENT
  Age: 59 Year
  Sex: Male
  Weight: 78.01 kg

DRUGS (2)
  1. ENBREL [Suspect]
     Indication: RHEUMATOID ARTHRITIS
     Dosage: 25 MG, 2 TIMES/WK
     Route: 058
     Dates: start: 2004
  2. TYLENOL                            /00020001/ [Concomitant]
     Dosage: UNK

REACTIONS (2)
  - Diverticulitis [Unknown]
  - Nerve compression [Recovered/Resolved]
